FAERS Safety Report 23154039 (Version 1)
Quarter: 2023Q4

REPORT INFORMATION
  Report Type: Spontaneous
  Country: FR (occurrence: FR)
  Receive Date: 20231107
  Receipt Date: 20231107
  Transmission Date: 20240110
  Serious: Yes (Hospitalization)
  Sender: FDA-Public Use
  Company Number: None

PATIENT
  Age: 34 Year
  Sex: Male
  Weight: 96 kg

DRUGS (6)
  1. VENLAFAXINE [Suspect]
     Active Substance: VENLAFAXINE HYDROCHLORIDE
     Indication: Depression
     Dosage: 75 MILLIGRAM, QD
     Route: 048
     Dates: start: 20230831, end: 20230913
  2. KEYTRUDA [Suspect]
     Active Substance: PEMBROLIZUMAB
     Indication: Metastatic ocular melanoma
     Dosage: 200 MILLIGRAM (1 TOTAL)
     Route: 042
     Dates: start: 20230907, end: 20230907
  3. OPDIVO [Suspect]
     Active Substance: NIVOLUMAB
     Indication: Metastatic ocular melanoma
     Dosage: 91 MILLIGRAM (1 TOTAL)
     Route: 042
     Dates: start: 20230721, end: 20230721
  4. OPDIVO [Suspect]
     Active Substance: NIVOLUMAB
     Dosage: 91 MILLIGRAM (1 TOTAL)
     Route: 042
     Dates: start: 20230811, end: 20230811
  5. YERVOY [Suspect]
     Active Substance: IPILIMUMAB
     Indication: Metastatic ocular melanoma
     Dosage: 273 MILLIGRAM (1 TOATL)
     Route: 042
     Dates: start: 20230721, end: 20230721
  6. YERVOY [Suspect]
     Active Substance: IPILIMUMAB
     Dosage: 273 MILLIGRAM (1 TOTAL)
     Route: 042
     Dates: start: 20230811, end: 20230811

REACTIONS (1)
  - Hepatic cytolysis [Recovering/Resolving]

NARRATIVE: CASE EVENT DATE: 20230908
